FAERS Safety Report 9937248 (Version 2)
Quarter: 2014Q1

REPORT INFORMATION
  Report Type: Spontaneous
  Country: US (occurrence: US)
  Receive Date: 20140302
  Receipt Date: 20140302
  Transmission Date: 20141002
  Serious: Yes (Other)
  Sender: FDA-Public Use
  Company Number: US-GE HEALTHCARE MEDICAL DIAGNOSTICS-OSCN-PR-0804S-0236

PATIENT
  Age: 25 Year
  Sex: Female

DRUGS (4)
  1. OMNISCAN [Suspect]
     Indication: BENIGN INTRACRANIAL HYPERTENSION
     Dates: start: 20010823, end: 20010823
  2. OMNISCAN [Suspect]
     Dates: start: 20011104, end: 20011104
  3. OMNISCAN [Suspect]
     Dates: start: 20060414, end: 20060414
  4. GADOLINIUM (UNSPECIFIED) [Suspect]
     Indication: PRODUCT USED FOR UNKNOWN INDICATION
     Dates: start: 19981028, end: 19981028

REACTIONS (1)
  - Nephrogenic systemic fibrosis [Not Recovered/Not Resolved]
